FAERS Safety Report 25488291 (Version 2)
Quarter: 2025Q3

REPORT INFORMATION
  Report Type: Report from Study
  Country: US (occurrence: US)
  Receive Date: 20250627
  Receipt Date: 20250919
  Transmission Date: 20251020
  Serious: Yes (Hospitalization)
  Sender: ROCHE
  Company Number: US-ROCHE-3445192

PATIENT
  Age: 3 Year
  Sex: Female
  Weight: 10.43 kg

DRUGS (1)
  1. EVRYSDI [Suspect]
     Active Substance: RISDIPLAM
     Indication: Spinal muscular atrophy
     Dosage: TAKE 4.4ML (3.3MG)
     Route: 050

REACTIONS (1)
  - Weight decreased [Unknown]
